FAERS Safety Report 8100633-5 (Version None)
Quarter: 2012Q1

REPORT INFORMATION
  Report Type: 
  Country: None (occurrence: None)
  Receive Date: 20120131
  Receipt Date: 20120125
  Transmission Date: 20120608
  Serious: Yes (Other)
  Sender: FDA-Public Use
  Company Number: IE-PFIZER INC-2011285371

PATIENT
  Age: 22 Year
  Sex: Female
  Weight: 80 kg

DRUGS (4)
  1. EFFEXOR XR [Suspect]
     Indication: ANXIETY
  2. ANXICALM [Concomitant]
     Indication: ANXIETY
     Dosage: 5 MG, 3X/DAY
     Route: 048
     Dates: start: 20111001
  3. EFFEXOR XR [Suspect]
     Indication: DEPRESSION
     Dosage: 37.5 ONCE DAILY AND TWICE DAILY
     Route: 048
     Dates: start: 20111001, end: 20111201
  4. ZIMOVANE [Concomitant]
     Indication: INSOMNIA
     Dosage: 7.5 MG UNIT DOSE
     Route: 048
     Dates: start: 20110901

REACTIONS (2)
  - HALLUCINATION, VISUAL [None]
  - NIGHTMARE [None]
